FAERS Safety Report 26210033 (Version 1)
Quarter: 2025Q4

REPORT INFORMATION
  Report Type: Report from Study
  Country: US (occurrence: US)
  Receive Date: 20251229
  Receipt Date: 20251229
  Transmission Date: 20260119
  Serious: Yes (Hospitalization, Other)
  Sender: VERONA PHARMA
  Company Number: US-VERONA PHARMA-VER-010785

PATIENT
  Age: 65 Year
  Sex: Female

DRUGS (2)
  1. OHTUVAYRE [Suspect]
     Active Substance: ENSIFENTRINE
     Indication: Product used for unknown indication
     Dosage: UNK
  2. OHTUVAYRE [Suspect]
     Active Substance: ENSIFENTRINE
     Dosage: BID
     Dates: start: 20251017, end: 20251027

REACTIONS (1)
  - Pneumonia [Recovered/Resolved with Sequelae]

NARRATIVE: CASE EVENT DATE: 20251027
